FAERS Safety Report 9819242 (Version 1)
Quarter: 2013Q4

REPORT INFORMATION
  Report Type: Spontaneous
  Country: US (occurrence: None)
  Receive Date: 20131223
  Receipt Date: 20131223
  Transmission Date: 20140711
  Serious: No
  Sender: FDA-Public Use
  Company Number: 221105

PATIENT
  Age: 43 Year
  Sex: Female

DRUGS (1)
  1. PICATO [Suspect]
     Indication: ACTINIC KERATOSIS
     Dosage: TREAT AK
     Dates: start: 20130322, end: 20130322

REACTIONS (7)
  - Application site pain [None]
  - Application site swelling [None]
  - Application site pustules [None]
  - Application site discharge [None]
  - Application site vesicles [None]
  - Incorrect drug administration duration [None]
  - Drug administered at inappropriate site [None]
